FAERS Safety Report 5820316-1 (Version None)
Quarter: 2008Q3

REPORT INFORMATION
  Report Type: 
  Country: None (occurrence: None)
  Receive Date: 20080724
  Receipt Date: 20070606
  Transmission Date: 20090109
  Serious: No
  Sender: FDA-Public Use
  Company Number: A0654403A

PATIENT
  Age: 73 Year
  Sex: Female

DRUGS (7)
  1. AVANDIA [Suspect]
     Dosage: 8MG PER DAY
     Route: 048
     Dates: start: 20040101, end: 20070306
  2. LEVOTHYROXINE SODIUM [Concomitant]
  3. METFORMIN [Concomitant]
  4. BENICAR [Concomitant]
  5. LOVASTATIN [Concomitant]
  6. FUROSEMIDE [Concomitant]
  7. JANUVIA [Concomitant]

REACTIONS (1)
  - WEIGHT INCREASED [None]
